FAERS Safety Report 11254055 (Version 1)
Quarter: 2015Q3

REPORT INFORMATION
  Report Type: Spontaneous
  Country: US (occurrence: None)
  Receive Date: 20150708
  Receipt Date: 20150708
  Transmission Date: 20151125
  Serious: Yes (Hospitalization)
  Sender: FDA-Public Use
  Company Number: None

PATIENT
  Age: 51 Year
  Sex: Female
  Weight: 70.91 kg

DRUGS (5)
  1. ATENOLOL. [Concomitant]
     Active Substance: ATENOLOL
  2. ASPIRIN. [Concomitant]
     Active Substance: ASPIRIN
  3. LOSARTAN. [Concomitant]
     Active Substance: LOSARTAN
  4. INVOKAMET [Suspect]
     Active Substance: CANAGLIFLOZIN\METFORMIN HYDROCHLORIDE
     Indication: TYPE 2 DIABETES MELLITUS
     Route: 048
     Dates: start: 20150603, end: 20150606
  5. ATOVASTATIN [Concomitant]
     Active Substance: ATORVASTATIN

REACTIONS (13)
  - Fatigue [None]
  - Pancreatitis [None]
  - Hyperkalaemia [None]
  - Acute kidney injury [None]
  - Vision blurred [None]
  - Hypermagnesaemia [None]
  - Polydipsia [None]
  - Unresponsive to stimuli [None]
  - Treatment noncompliance [None]
  - Cardiac arrest [None]
  - Polyuria [None]
  - Acidosis [None]
  - Acute myocardial infarction [None]

NARRATIVE: CASE EVENT DATE: 20150606
